FAERS Safety Report 9144305 (Version 2)
Quarter: 2014Q2

REPORT INFORMATION
  Report Type: Report from Study
  Country: JP (occurrence: JP)
  Receive Date: 20130306
  Receipt Date: 20140423
  Transmission Date: 20141212
  Serious: Yes (Other)
  Sender: FDA-Public Use
  Company Number: JP-VERTEX PHARMACEUTICALS INC.-2013-003079

PATIENT
  Age: 46 Year
  Sex: Male

DRUGS (8)
  1. VX-950 (TELAPREVIR) [Suspect]
     Indication: CHRONIC HEPATITIS C
     Dosage: 2250 MG, QD
     Route: 048
     Dates: start: 20120906, end: 20121128
  2. PEGINTERFERON ALFA-2B [Suspect]
     Indication: CHRONIC HEPATITIS C
     Dosage: 1.5 ?G/KG, QW
     Route: 058
     Dates: start: 20120906
  3. RIBAVIRIN [Suspect]
     Indication: CHRONIC HEPATITIS C
     Dosage: 800 MG, QD
     Route: 048
     Dates: start: 20120906
  4. ALLOPURINOL [Concomitant]
     Dosage: 200 MG, QD
     Route: 048
     Dates: end: 20121227
  5. CELESTAMINE [Concomitant]
     Dosage: 6 DF, QD
     Route: 048
  6. GASMOTIN [Concomitant]
     Dosage: 15 MG, QD
     Route: 048
     Dates: start: 20120907
  7. PARIET [Concomitant]
     Dosage: 10 MG, QD
     Route: 048
     Dates: start: 20120907
  8. ZOLPIDEM TARTRATE [Concomitant]
     Dosage: 10 MG, QD
     Route: 048
     Dates: end: 20130318

REACTIONS (1)
  - Depressive symptom [Not Recovered/Not Resolved]
